FAERS Safety Report 6288827-5 (Version None)
Quarter: 2009Q3

REPORT INFORMATION
  Report Type: 
  Country: None (occurrence: None)
  Receive Date: 20090729
  Receipt Date: 20090722
  Transmission Date: 20100115
  Serious: Yes (Death, Other)
  Sender: FDA-Public Use
  Company Number: ES-CELGENEUS-144-50794-09071934

PATIENT
  Sex: Male

DRUGS (2)
  1. VIDAZA [Suspect]
     Route: 058
     Dates: end: 20080724
  2. VIDAZA [Suspect]
     Route: 058
     Dates: end: 20081106

REACTIONS (6)
  - ANAEMIA [None]
  - FEBRILE NEUTROPENIA [None]
  - LUNG INFECTION [None]
  - NEUTROPENIA [None]
  - SEPTIC SHOCK [None]
  - THROMBOCYTOPENIA [None]
